FAERS Safety Report 7266306-6 (Version None)
Quarter: 2011Q1

REPORT INFORMATION
  Report Type: 
  Country: None (occurrence: None)
  Receive Date: 20110119
  Receipt Date: 20110112
  Transmission Date: 20110831
  Serious: Yes (Hospitalization, Other)
  Sender: FDA-Public Use
  Company Number: 2010SP012619

PATIENT
  Age: 27 Year
  Sex: Female
  Weight: 111.1313 kg

DRUGS (1)
  1. NUVARING [Suspect]
     Indication: CONTRACEPTION
     Dosage: VAG
     Route: 067
     Dates: start: 20071201, end: 20080201

REACTIONS (20)
  - CEREBRAL VENOUS THROMBOSIS [None]
  - INTRACRANIAL PRESSURE INCREASED [None]
  - HYPERTENSION [None]
  - MIGRAINE [None]
  - BRAIN OEDEMA [None]
  - CENTRAL NERVOUS SYSTEM NECROSIS [None]
  - ANXIETY [None]
  - DEPRESSION [None]
  - ELECTROENCEPHALOGRAM ABNORMAL [None]
  - TACHYCARDIA [None]
  - DEEP VEIN THROMBOSIS [None]
  - WEIGHT INCREASED [None]
  - STRESS [None]
  - OBSESSIVE-COMPULSIVE DISORDER [None]
  - CEREBROVASCULAR ACCIDENT [None]
  - OVARIAN CYST [None]
  - TRANSVERSE SINUS THROMBOSIS [None]
  - SYSTEMIC LUPUS ERYTHEMATOSUS [None]
  - ANTITHROMBIN III DECREASED [None]
  - CEREBRAL INFARCTION [None]
